FAERS Safety Report 12638179 (Version 4)
Quarter: 2018Q3

REPORT INFORMATION
  Report Type: Spontaneous
  Country: US (occurrence: US)
  Receive Date: 20160809
  Receipt Date: 20180726
  Transmission Date: 20181010
  Serious: Yes (Other)
  Sender: FDA-Public Use
  Company Number: US-SA-2016SA124730

PATIENT
  Age: 69 Year
  Sex: Male

DRUGS (6)
  1. FLECAINIDE [Concomitant]
     Active Substance: FLECAINIDE
     Dosage: 50 MG,UNK
  2. FLUVIRINE [Concomitant]
  3. PRALUENT [Suspect]
     Active Substance: ALIROCUMAB
     Indication: HYPERLIPIDAEMIA
     Dosage: 75 MG,QOW
     Route: 058
     Dates: start: 20160411
  4. PNEUMOVAX?23 [Concomitant]
  5. LAMISIL [Concomitant]
     Active Substance: TERBINAFINE HYDROCHLORIDE
  6. CARAFATE [Concomitant]
     Active Substance: SUCRALFATE

REACTIONS (3)
  - Cardiac flutter [Not Recovered/Not Resolved]
  - Asthenia [Unknown]
  - Product use issue [Unknown]

NARRATIVE: CASE EVENT DATE: 2016
